FAERS Safety Report 23169140 (Version 1)
Quarter: 2023Q4

REPORT INFORMATION
  Report Type: Spontaneous
  Country: DE (occurrence: DE)
  Receive Date: 20231110
  Receipt Date: 20231110
  Transmission Date: 20240109
  Serious: Yes (Hospitalization, Congenital Anomaly, Other)
  Sender: FDA-Public Use
  Company Number: DE-EMBRYOTOX-202205530

PATIENT
  Age: 1 Day
  Sex: Female
  Weight: 3.825 kg

DRUGS (4)
  1. FLUOXETINE [Suspect]
     Active Substance: FLUOXETINE HYDROCHLORIDE
     Indication: Depression
     Dosage: 40 [MG/D (BIS 30) ]/ 40 MG/D AT LEAST UNTIL GW 8.6, REDUCED TO 30 MG/D IN THE COURSE OF PREGNANCY
     Route: 064
     Dates: start: 20220301, end: 20221118
  2. INSULIN NOS [Concomitant]
     Active Substance: INSULIN NOS
     Indication: Gestational diabetes
  3. DIMENHYDRINATE [Concomitant]
     Active Substance: DIMENHYDRINATE
     Indication: Nausea
     Dosage: UNTIL AUGUST 2022
     Route: 064
  4. ASS 100 TAH [Concomitant]
     Indication: Product used for unknown indication
     Dosage: 100 [MG/D ]
     Route: 064
     Dates: start: 20220913, end: 20221111

REACTIONS (4)
  - Atrial septal defect [Recovered/Resolved]
  - Respiratory disorder neonatal [Recovered/Resolved]
  - Patent ductus arteriosus [Not Recovered/Not Resolved]
  - Foetal exposure during pregnancy [Unknown]

NARRATIVE: CASE EVENT DATE: 20221101
